FAERS Safety Report 9836891 (Version 1)
Quarter: 2014Q1

REPORT INFORMATION
  Report Type: Spontaneous
  Country: US (occurrence: US)
  Receive Date: 20140123
  Receipt Date: 20140123
  Transmission Date: 20141002
  Serious: No
  Sender: FDA-Public Use
  Company Number: US-PFIZER INC-2014016895

PATIENT
  Age: 15 Year
  Sex: Female
  Weight: 62.59 kg

DRUGS (2)
  1. JUNIOR STRENGTH ADVIL [Suspect]
     Indication: HEADACHE
     Dosage: 3 TABLETS, DAILY
  2. ALEVE [Concomitant]
     Indication: HEADACHE
     Dosage: UNK

REACTIONS (3)
  - Oral discomfort [Recovering/Resolving]
  - Throat irritation [Recovering/Resolving]
  - Cough [Recovering/Resolving]
